FAERS Safety Report 6924134-2 (Version None)
Quarter: 2010Q3

REPORT INFORMATION
  Report Type: 
  Country: None (occurrence: None)
  Receive Date: 20100812
  Receipt Date: 20100812
  Transmission Date: 20110219
  Serious: Yes (Life-Threatening, Other)
  Sender: FDA-Public Use
  Company Number: None

PATIENT
  Age: 56 Year
  Sex: Male
  Weight: 124.7392 kg

DRUGS (2)
  1. LIPITOR [Suspect]
     Indication: BLOOD CHOLESTEROL INCREASED
     Dosage: 25 MG 1 DAILY PO
     Route: 048
     Dates: start: 20070515, end: 20100615
  2. ZOCOR [Concomitant]

REACTIONS (7)
  - AMNESIA [None]
  - AMYOTROPHIC LATERAL SCLEROSIS [None]
  - CONVULSION [None]
  - CORONARY ARTERY BYPASS [None]
  - DYSPHONIA [None]
  - MULTIPLE ALLERGIES [None]
  - WEIGHT DECREASED [None]
